FAERS Safety Report 5057264-3 (Version None)
Quarter: 2006Q3

REPORT INFORMATION
  Report Type: 
  Country: None (occurrence: None)
  Receive Date: 20060721
  Receipt Date: 20050711
  Transmission Date: 20061208
  Serious: No
  Sender: FDA-Public Use
  Company Number: US-GLAXOSMITHKLINE-A0565757A

PATIENT
  Age: 63 Year
  Sex: Male

DRUGS (6)
  1. AVANDIA [Suspect]
     Dosage: 4MG PER DAY
     Route: 048
     Dates: start: 20050707
  2. NORVASC [Concomitant]
  3. TORSEMIDE [Concomitant]
  4. BISOPROLOL FUMARATE [Concomitant]
  5. COZAAR [Concomitant]
  6. PRAVACHOL [Concomitant]

REACTIONS (2)
  - BLOOD GLUCOSE INCREASED [None]
  - LARYNGITIS [None]
